FAERS Safety Report 4541173-X (Version None)
Quarter: 2004Q4

REPORT INFORMATION
  Report Type: 
  Country: None (occurrence: None)
  Receive Date: 20041227
  Receipt Date: 20041216
  Transmission Date: 20050328
  Serious: Yes (Death)
  Sender: FDA-Public Use
  Company Number: FRWYE290117DEC04

PATIENT
  Sex: Male

DRUGS (1)
  1. LEVONORGESTREL AND ETHINYL ESTRADIOL [Suspect]
     Indication: CONTRACEPTION
     Dosage: 1 TABLET 1X PER 1 DAY
     Route: 048
     Dates: start: 20040301, end: 20040901

REACTIONS (2)
  - DRUG EXPOSURE DURING PREGNANCY [None]
  - VICTIM OF HOMICIDE [None]
